FAERS Safety Report 5684935-8 (Version None)
Quarter: 2008Q1

REPORT INFORMATION
  Report Type: 
  Country: None (occurrence: None)
  Receive Date: 20080328
  Receipt Date: 20080108
  Transmission Date: 20080703
  Serious: No
  Sender: FDA-Public Use
  Company Number: US-BRISTOL-MYERS SQUIBB COMPANY-14033484

PATIENT
  Age: 76 Year
  Sex: Male
  Weight: 73 kg

DRUGS (9)
  1. ERBITUX [Suspect]
     Indication: LUNG CANCER METASTATIC
     Route: 042
     Dates: start: 20080102, end: 20080102
  2. CEPHALEXIN [Suspect]
     Dosage: 1 PER 6 HOUR (TWICE FOR 10 DAYS).
  3. AVAPRO [Concomitant]
  4. CARBOPLATIN [Concomitant]
  5. FLUOROURACIL [Concomitant]
     Dosage: VIA. 4 DAY PUMP.
  6. TAGAMET [Concomitant]
     Indication: PREMEDICATION
     Route: 042
  7. DECADRON [Concomitant]
     Indication: PREMEDICATION
     Route: 042
  8. BENADRYL [Concomitant]
     Indication: PREMEDICATION
     Route: 042
  9. ALOXI [Concomitant]
     Indication: PREMEDICATION
     Route: 042

REACTIONS (5)
  - BLOOD MAGNESIUM DECREASED [None]
  - DERMATITIS ACNEIFORM [None]
  - DRUG INEFFECTIVE [None]
  - IMPAIRED HEALING [None]
  - LOCALISED INFECTION [None]
